FAERS Safety Report 19012223 (Version 1)
Quarter: 2021Q1

REPORT INFORMATION
  Report Type: Spontaneous
  Country: US (occurrence: US)
  Receive Date: 20210316
  Receipt Date: 20210316
  Transmission Date: 20210420
  Serious: Yes (Other)
  Sender: FDA-Public Use
  Company Number: US-BAUSCH-BL-2021-008704

PATIENT
  Age: 63 Year
  Sex: Male

DRUGS (2)
  1. EPINEPHRINE. [Suspect]
     Active Substance: EPINEPHRINE
     Indication: CARDIAC ARREST
     Route: 065
  2. ATROPINE. [Suspect]
     Active Substance: ATROPINE
     Indication: CARDIAC ARREST
     Route: 065

REACTIONS (2)
  - Pupil fixed [Unknown]
  - Therapy non-responder [Unknown]
